FAERS Safety Report 4717096-X (Version None)
Quarter: 2005Q3

REPORT INFORMATION
  Report Type: 
  Country: None (occurrence: None)
  Receive Date: 20050712
  Receipt Date: 20040803
  Transmission Date: 20060218
  Serious: Yes (Life-Threatening, Other)
  Sender: FDA-Public Use
  Company Number: PHEH2004US08414

PATIENT
  Sex: Male

DRUGS (15)
  1. GLEEVEC [Suspect]
     Indication: CHRONIC MYELOID LEUKAEMIA
     Dosage: 400 MG, QD, ORAL
     Route: 048
     Dates: start: 20040526, end: 20040601
  2. GLEEVEC [Suspect]
     Indication: CHRONIC MYELOID LEUKAEMIA
     Dosage: 400 MG, QD, ORAL
     Route: 048
     Dates: start: 20040608, end: 20040701
  3. ALLOPURINOL [Concomitant]
  4. NEORAL [Concomitant]
  5. IMURAN [Concomitant]
  6. PREDNISONE [Concomitant]
  7. AVANDIA [Concomitant]
  8. LASIX [Concomitant]
  9. TRANDATE [Concomitant]
  10. PROZAC [Concomitant]
  11. KLONOPIN [Concomitant]
  12. LIPITOR [Concomitant]
  13. AMBIEN [Concomitant]
  14. TUMS (CALCIUM CARBONATE) [Concomitant]
  15. ACETYLSALICYLIC ACID SRT [Concomitant]

REACTIONS (4)
  - ANAEMIA [None]
  - BLOOD CREATININE INCREASED [None]
  - BLOOD UREA INCREASED [None]
  - NEUTROPENIA [None]
